FAERS Safety Report 14790345 (Version 1)
Quarter: 2018Q2

REPORT INFORMATION
  Report Type: Spontaneous
  Country: US (occurrence: US)
  Receive Date: 20180423
  Receipt Date: 20180423
  Transmission Date: 20180711
  Serious: No
  Sender: FDA-Public Use
  Company Number: US-PFIZER INC-2018161890

PATIENT
  Age: 70 Year
  Sex: Female

DRUGS (3)
  1. FEMARA [Suspect]
     Active Substance: LETROZOLE
     Dosage: UNK
     Dates: start: 201503, end: 201703
  2. IBRANCE [Suspect]
     Active Substance: PALBOCICLIB
     Dosage: UNK
     Dates: start: 201508
  3. FASLODEX [Suspect]
     Active Substance: FULVESTRANT
     Dosage: UNK
     Dates: start: 201703

REACTIONS (1)
  - Tumour marker increased [Unknown]
